FAERS Safety Report 7460573-1 (Version None)
Quarter: 2011Q2

REPORT INFORMATION
  Report Type: 
  Country: None (occurrence: None)
  Receive Date: 20110505
  Receipt Date: 20110427
  Transmission Date: 20111010
  Serious: Yes (Hospitalization)
  Sender: FDA-Public Use
  Company Number: US-MYLANLABS-2011S1008790

PATIENT
  Age: 33 Year
  Sex: Female

DRUGS (2)
  1. FENTANYL CITRATE [Suspect]
     Route: 002
  2. FENTANYL-100 [Suspect]
     Route: 062

REACTIONS (3)
  - LOSS OF CONSCIOUSNESS [None]
  - ELECTROCARDIOGRAM QT PROLONGED [None]
  - SOMNOLENCE [None]
